FAERS Safety Report 5967089-X (Version None)
Quarter: 2008Q4

REPORT INFORMATION
  Report Type: 
  Country: None (occurrence: None)
  Receive Date: 20081125
  Receipt Date: 20081118
  Transmission Date: 20090506
  Serious: Yes (Other)
  Sender: FDA-Public Use
  Company Number: AU-AMGEN-QUU316447

PATIENT
  Sex: Male
  Weight: 110 kg

DRUGS (8)
  1. ARANESP [Suspect]
     Indication: DIALYSIS
     Route: 058
     Dates: start: 20071101, end: 20080701
  2. EPREX [Concomitant]
     Route: 058
     Dates: start: 20080701
  3. CALCITRIOL [Concomitant]
     Dates: start: 20080701
  4. CALTRATE [Concomitant]
     Dates: start: 20080101
  5. INSULIN [Concomitant]
     Dates: start: 20000101
  6. CARVEDILOL [Concomitant]
  7. FRUSEMIDE [Concomitant]
  8. ATORVASTATIN CALCIUM [Concomitant]

REACTIONS (13)
  - BLOOD CALCIUM DECREASED [None]
  - BLOOD PHOSPHORUS INCREASED [None]
  - DEPRESSION [None]
  - DRY SKIN [None]
  - EOSINOPHILIA [None]
  - FATIGUE [None]
  - FLUID OVERLOAD [None]
  - FLUID RETENTION [None]
  - HAEMOGLOBIN DECREASED [None]
  - HYPERSENSITIVITY [None]
  - LETHARGY [None]
  - RASH GENERALISED [None]
  - URINE OUTPUT DECREASED [None]
